FAERS Safety Report 8561185-9 (Version None)
Quarter: 2012Q3

REPORT INFORMATION
  Report Type: 
  Country: None (occurrence: None)
  Receive Date: 20120802
  Receipt Date: 20120730
  Transmission Date: 20120928
  Serious: Yes (Other)
  Sender: FDA-Public Use
  Company Number: US-PFIZER INC-2012185289

PATIENT
  Sex: Female

DRUGS (5)
  1. ASPIRIN [Concomitant]
     Dosage: 81 MG
  2. EFFEXOR XR [Suspect]
     Dosage: 150 MG
  3. MULTI-VITAMINS [Concomitant]
  4. OMEPRAZOLE [Concomitant]
     Dosage: 20 MG
  5. CALCIUM [Concomitant]
     Dosage: CALCIUM 600

REACTIONS (2)
  - BREAST CANCER [None]
  - FATIGUE [None]
